FAERS Safety Report 9188774 (Version 4)
Quarter: 2013Q3

REPORT INFORMATION
  Report Type: Report from Study
  Country: CA (occurrence: CA)
  Receive Date: 20130326
  Receipt Date: 20130806
  Transmission Date: 20140515
  Serious: Yes (Other)
  Sender: FDA-Public Use
  Company Number: CA-ROCHE-1205182

PATIENT
  Age: 68 Year
  Sex: Female
  Weight: 74.8 kg

DRUGS (7)
  1. RITUXAN [Suspect]
     Indication: B-CELL LYMPHOMA
     Route: 042
     Dates: start: 201112, end: 201306
  2. RITUXAN [Suspect]
     Indication: B-CELL LYMPHOMA
  3. CYCLOPHOSPHAMIDE [Suspect]
     Indication: B-CELL LYMPHOMA
     Route: 042
     Dates: start: 201112, end: 201203
  4. DOXORUBICIN [Suspect]
     Indication: B-CELL LYMPHOMA
     Route: 042
     Dates: start: 201112, end: 201203
  5. VINCRISTINE [Suspect]
     Indication: B-CELL LYMPHOMA
     Route: 042
     Dates: start: 201112, end: 201203
  6. PREDNISOLONE [Suspect]
     Indication: B-CELL LYMPHOMA
     Dosage: 100 MG X 5D
     Route: 048
     Dates: start: 201112, end: 201203
  7. CYTARABIN [Concomitant]
     Route: 037

REACTIONS (3)
  - Deep vein thrombosis [Recovered/Resolved]
  - Local swelling [Recovered/Resolved]
  - White blood cell count decreased [Recovering/Resolving]
